FAERS Safety Report 8243501-0 (Version None)
Quarter: 2012Q1

REPORT INFORMATION
  Report Type: 
  Country: None (occurrence: None)
  Receive Date: 20120329
  Receipt Date: 20120323
  Transmission Date: 20120608
  Serious: Yes (Death)
  Sender: FDA-Public Use
  Company Number: PHEH2012US006516

PATIENT
  Sex: Female
  Weight: 39 kg

DRUGS (1)
  1. TOBI [Suspect]
     Indication: BRONCHITIS CHRONIC
     Dosage: 300 MG, Q12H
     Dates: start: 20111210, end: 20120303

REACTIONS (4)
  - VIRAEMIA [None]
  - CHRONIC GRAFT VERSUS HOST DISEASE [None]
  - PNEUMONIA FUNGAL [None]
  - OBLITERATIVE BRONCHIOLITIS [None]
